FAERS Safety Report 9834589 (Version 1)
Quarter: 2014Q1

REPORT INFORMATION
  Report Type: Spontaneous
  Country: GB (occurrence: GB)
  Receive Date: 20140122
  Receipt Date: 20140122
  Transmission Date: 20141002
  Serious: Yes (Disabling, Other)
  Sender: FDA-Public Use
  Company Number: GB-PFIZER INC-2014016727

PATIENT
  Age: 66 Year
  Sex: Female

DRUGS (6)
  1. AMLODIPINE BESILATE [Suspect]
     Indication: HYPERTENSION
     Dosage: 5 MG, 1X/DAY
     Route: 048
     Dates: start: 20131218, end: 20131226
  2. HALF-INDERAL LA [Concomitant]
     Dosage: 40 MG, 1X/DAY
  3. CETIRIZINE [Concomitant]
     Dosage: 10 MG, 1X/DAY
  4. BENDROFLUMETHIAZIDE [Concomitant]
     Dosage: 2.5 MG, 1X/DAY
  5. ATORVASTATIN [Concomitant]
     Dosage: 20 MG, 1X/DAY
  6. ASPIRIN [Concomitant]
     Dosage: 75 MG, 1X/DAY

REACTIONS (3)
  - Rash erythematous [Not Recovered/Not Resolved]
  - Local swelling [Not Recovered/Not Resolved]
  - Skin depigmentation [Not Recovered/Not Resolved]
